FAERS Safety Report 22333630 (Version 1)
Quarter: 2023Q2

REPORT INFORMATION
  Report Type: Spontaneous
  Country: US (occurrence: None)
  Receive Date: 20230516
  Receipt Date: 20230516
  Transmission Date: 20230721
  Serious: Yes (Hospitalization)
  Sender: FDA-Public Use
  Company Number: None

PATIENT
  Age: 75 Year
  Sex: Female
  Weight: 60.9 kg

DRUGS (4)
  1. MAVACAMTEN [Suspect]
     Active Substance: MAVACAMTEN
     Indication: Hypertrophic cardiomyopathy
     Dosage: 2.5MG ONCE DAILY ORAL?
     Route: 048
     Dates: start: 20221127
  2. METOPROLOL SUCCINATE [Concomitant]
     Active Substance: METOPROLOL SUCCINATE
  3. LIPITOR [Concomitant]
     Active Substance: ATORVASTATIN CALCIUM
  4. LEVOCETIRIZINE [Concomitant]
     Active Substance: LEVOCETIRIZINE

REACTIONS (7)
  - Fatigue [None]
  - Dyspnoea [None]
  - Drug intolerance [None]
  - Bradycardia [None]
  - Aortic dissection [None]
  - Middle insomnia [None]
  - Therapy cessation [None]

NARRATIVE: CASE EVENT DATE: 20230507
